FAERS Safety Report 9714810 (Version 1)
Quarter: 2013Q4

REPORT INFORMATION
  Report Type: Spontaneous
  Country: CA (occurrence: None)
  Receive Date: 20131125
  Receipt Date: 20131125
  Transmission Date: 20140711
  Serious: Yes (Hospitalization)
  Sender: FDA-Public Use
  Company Number: 2013P1021139

PATIENT
  Age: 22 Year
  Sex: Female

DRUGS (2)
  1. VALPROATE SODIUM [Suspect]
     Indication: JUVENILE MYOCLONIC EPILEPSY
  2. LAMOTRIGINE [Concomitant]

REACTIONS (6)
  - Cognitive disorder [None]
  - Educational problem [None]
  - Myoclonic epilepsy [None]
  - Grand mal convulsion [None]
  - Myoclonic epilepsy [None]
  - Encephalopathy [None]
